FAERS Safety Report 4535076-4 (Version None)
Quarter: 2004Q4

REPORT INFORMATION
  Report Type: 
  Country: None (occurrence: None)
  Receive Date: 20041222
  Receipt Date: 20041213
  Transmission Date: 20050328
  Serious: Yes (Death)
  Sender: FDA-Public Use
  Company Number: IT-ROCHE-389105

PATIENT
  Age: 74 Year
  Sex: Male

DRUGS (1)
  1. ROCEPHIN [Suspect]
     Indication: PROPHYLAXIS
     Dosage: STRENGTH AND FORMULATION REPORTED AS VIAL
     Route: 042
     Dates: start: 20041130, end: 20041130

REACTIONS (1)
  - ANAPHYLACTIC SHOCK [None]
